FAERS Safety Report 4760167-2 (Version None)
Quarter: 2005Q3

REPORT INFORMATION
  Report Type: 
  Country: None (occurrence: None)
  Receive Date: 20050831
  Receipt Date: 20050817
  Transmission Date: 20060218
  Serious: Yes (Hospitalization, Disabling, Other)
  Sender: FDA-Public Use
  Company Number: USA020414158

PATIENT
  Age: 63 Year
  Sex: Female
  Weight: 74 kg

DRUGS (7)
  1. HUMULIN-HUMAN INSULIN (RDNA) :30% REGULAR, 0% NPH (H [Suspect]
     Indication: DIABETES MELLITUS
     Dosage: 115 U/DAY
  2. HUMULIN R [Suspect]
     Indication: DIABETES MELLITUS
  3. HUMULIN N [Suspect]
     Indication: DIABETES MELLITUS
  4. HUMALOG MIX 75/25 [Suspect]
     Indication: DIABETES MELLITUS
     Dates: start: 20050201
  5. PROZAC [Suspect]
  6. PRAVACHOL [Concomitant]
  7. THYROID TAB [Concomitant]

REACTIONS (11)
  - ANAEMIA [None]
  - BLOOD GLUCOSE DECREASED [None]
  - BLOOD GLUCOSE FLUCTUATION [None]
  - BLOOD GLUCOSE INCREASED [None]
  - CARDIAC FAILURE CONGESTIVE [None]
  - EYE HAEMORRHAGE [None]
  - GALLBLADDER DISORDER [None]
  - GLAUCOMA [None]
  - INCREASED TENDENCY TO BRUISE [None]
  - INJECTION SITE HAEMORRHAGE [None]
  - SKIN ULCER [None]
